FAERS Safety Report 8137360-4 (Version None)
Quarter: 2012Q1

REPORT INFORMATION
  Report Type: 
  Country: None (occurrence: None)
  Receive Date: 20120210
  Receipt Date: 20120130
  Transmission Date: 20120608
  Serious: Yes (Other)
  Sender: FDA-Public Use
  Company Number: 1184670

PATIENT
  Age: 13 Year
  Sex: Male

DRUGS (2)
  1. MEROPENEM [Suspect]
     Indication: EMPYEMA
  2. CEFTRIAXONE [Suspect]
     Indication: EMPYEMA

REACTIONS (9)
  - SINUSITIS [None]
  - ORAL DISORDER [None]
  - SKIN LESION [None]
  - EMPYEMA [None]
  - PRURIGO [None]
  - RASH MACULO-PAPULAR [None]
  - PYREXIA [None]
  - MALAISE [None]
  - TYPE IV HYPERSENSITIVITY REACTION [None]
